FAERS Safety Report 25881702 (Version 1)
Quarter: 2025Q4

REPORT INFORMATION
  Report Type: Spontaneous
  Country: US (occurrence: US)
  Receive Date: 20251005
  Receipt Date: 20251005
  Transmission Date: 20260117
  Serious: No
  Sender: ELI LILLY AND COMPANY
  Company Number: US-ELI_LILLY_AND_COMPANY-US202509023747

PATIENT
  Age: 52 Year
  Sex: Female

DRUGS (10)
  1. MOUNJARO [Suspect]
     Active Substance: TIRZEPATIDE
     Indication: Vomiting
     Dosage: UNK, UNK, UNKNOWN
     Route: 058
     Dates: start: 2023
  2. MOUNJARO [Suspect]
     Active Substance: TIRZEPATIDE
     Indication: Dyspepsia
  3. MOUNJARO [Suspect]
     Active Substance: TIRZEPATIDE
     Indication: Vomiting
     Dosage: 7.5 MG, UNKNOWN
     Route: 058
  4. MOUNJARO [Suspect]
     Active Substance: TIRZEPATIDE
     Indication: Vomiting
     Dosage: 7.5 MG, UNKNOWN
     Route: 058
  5. MOUNJARO [Suspect]
     Active Substance: TIRZEPATIDE
     Indication: Vomiting
     Dosage: 7.5 MG, UNKNOWN
     Route: 058
  6. MOUNJARO [Suspect]
     Active Substance: TIRZEPATIDE
     Indication: Vomiting
     Dosage: 7.5 MG, UNKNOWN
     Route: 058
  7. MOUNJARO [Suspect]
     Active Substance: TIRZEPATIDE
     Indication: Dyspepsia
  8. MOUNJARO [Suspect]
     Active Substance: TIRZEPATIDE
     Indication: Dyspepsia
  9. MOUNJARO [Suspect]
     Active Substance: TIRZEPATIDE
     Indication: Dyspepsia
  10. MOUNJARO [Suspect]
     Active Substance: TIRZEPATIDE
     Indication: Dyspepsia

REACTIONS (4)
  - Off label use [Unknown]
  - Extra dose administered [Unknown]
  - Vomiting [Unknown]
  - Injection site pain [Unknown]
